FAERS Safety Report 8367084-X (Version None)
Quarter: 2012Q2

REPORT INFORMATION
  Report Type: 
  Country: None (occurrence: None)
  Receive Date: 20120517
  Receipt Date: 20120512
  Transmission Date: 20120825
  Serious: Yes (Other)
  Sender: FDA-Public Use
  Company Number: US-AMGEN-KDL436688

PATIENT
  Age: 55 Year
  Sex: Female

DRUGS (2)
  1. ENBREL [Suspect]
     Dosage: 25 MG, 2 TIMES/WK
     Route: 058
     Dates: start: 19990601, end: 20100101
  2. ENBREL [Suspect]
     Indication: RHEUMATOID ARTHRITIS
     Dosage: 50 MG, QWK
     Route: 058
     Dates: start: 20120512

REACTIONS (11)
  - LYMPHOCYTE COUNT INCREASED [None]
  - ARTHRALGIA [None]
  - WOUND [None]
  - CELLULITIS [None]
  - RED CELL DISTRIBUTION WIDTH INCREASED [None]
  - NEUTROPHIL COUNT DECREASED [None]
  - RHEUMATOID ARTHRITIS [None]
  - EOSINOPHIL COUNT INCREASED [None]
  - MOBILITY DECREASED [None]
  - PRURITUS [None]
  - OEDEMA PERIPHERAL [None]
